FAERS Safety Report 12668669 (Version 1)
Quarter: 2016Q3

REPORT INFORMATION
  Report Type: Spontaneous
  Country: IN (occurrence: IN)
  Receive Date: 20160819
  Receipt Date: 20160819
  Transmission Date: 20161109
  Serious: Yes (Other)
  Sender: FDA-Public Use
  Company Number: IN-SUN PHARMACEUTICAL INDUSTRIES LTD-2016R1-122417

PATIENT
  Age: 62 Year
  Sex: Male

DRUGS (9)
  1. IRINOTECAN [Suspect]
     Active Substance: IRINOTECAN
     Indication: METASTASES TO LUNG
     Dosage: FIRST CYCLE
     Route: 065
  2. FLUOROURACIL. [Suspect]
     Active Substance: FLUOROURACIL
     Indication: BLADDER ADENOCARCINOMA STAGE UNSPECIFIED
  3. CALCIUM FOLINAT [Suspect]
     Active Substance: LEUCOVORIN CALCIUM
     Indication: BLADDER ADENOCARCINOMA STAGE UNSPECIFIED
     Dosage: FIRST CYCLE
     Route: 065
  4. CALCIUM FOLINAT [Suspect]
     Active Substance: LEUCOVORIN CALCIUM
     Indication: METASTASES TO LUNG
  5. FLUOROURACIL. [Suspect]
     Active Substance: FLUOROURACIL
     Indication: METASTASES TO LUNG
     Dosage: FIRST CYCLE
     Route: 065
  6. FLUOROURACIL. [Suspect]
     Active Substance: FLUOROURACIL
     Indication: COLON CANCER METASTATIC
  7. IRINOTECAN [Suspect]
     Active Substance: IRINOTECAN
     Indication: BLADDER ADENOCARCINOMA STAGE UNSPECIFIED
  8. CALCIUM FOLINAT [Suspect]
     Active Substance: LEUCOVORIN CALCIUM
     Indication: COLON CANCER METASTATIC
  9. IRINOTECAN [Suspect]
     Active Substance: IRINOTECAN
     Indication: COLON CANCER METASTATIC

REACTIONS (1)
  - Intestinal obstruction [Unknown]
